FAERS Safety Report 13138563 (Version 1)
Quarter: 2017Q1

REPORT INFORMATION
  Report Type: Report from Study
  Country: US (occurrence: US)
  Receive Date: 20170123
  Receipt Date: 20170123
  Transmission Date: 20170428
  Serious: Yes (Life-Threatening, Hospitalization)
  Sender: FDA-Public Use
  Company Number: PHEH2017US002295

PATIENT
  Sex: Male

DRUGS (2)
  1. JADENU [Suspect]
     Active Substance: DEFERASIROX
     Indication: HAEMOLYTIC ANAEMIA
  2. JADENU [Suspect]
     Active Substance: DEFERASIROX
     Indication: CARCINOID TUMOUR
     Dosage: 360 MG, QD
     Route: 048

REACTIONS (2)
  - Renal failure [Unknown]
  - Apparent death [Unknown]
